FAERS Safety Report 9484196 (Version 2)
Quarter: 2013Q3

REPORT INFORMATION
  Report Type: Spontaneous
  Country: CA (occurrence: CA)
  Receive Date: 20130828
  Receipt Date: 20130828
  Transmission Date: 20140515
  Serious: Yes (Other)
  Sender: FDA-Public Use
  Company Number: CA-AMGEN-KDL253936

PATIENT
  Age: 69 Year
  Sex: Female

DRUGS (1)
  1. ENBREL [Suspect]
     Indication: RHEUMATOID ARTHRITIS
     Dosage: UNK UNK, QWK
     Route: 065
     Dates: start: 20061218, end: 200912

REACTIONS (5)
  - Salivary gland cancer [Unknown]
  - Blood test abnormal [Unknown]
  - Injection site swelling [Unknown]
  - Injection site erythema [Unknown]
  - Injection site pain [Unknown]
